FAERS Safety Report 23035239 (Version 8)
Quarter: 2024Q2

REPORT INFORMATION
  Report Type: Spontaneous
  Country: US (occurrence: US)
  Receive Date: 20231005
  Receipt Date: 20240604
  Transmission Date: 20240716
  Serious: Yes (Other)
  Sender: FDA-Public Use
  Company Number: US-BRISTOL-MYERS SQUIBB COMPANY-2023-139787

PATIENT
  Age: 84 Year
  Sex: Female

DRUGS (3)
  1. LENALIDOMIDE [Suspect]
     Active Substance: LENALIDOMIDE
     Indication: Plasma cell myeloma in remission
     Dosage: 1 CAPSULE BY MOUTH EVERY DAY ON DAYS 1-28 EVERY 28 DAYS
     Route: 048
     Dates: start: 20221028
  2. LENALIDOMIDE [Suspect]
     Active Substance: LENALIDOMIDE
     Dosage: 1 CAPSULE BY MOUTH EVERY DAY ON DAYS 1-28 EVERY 28 DAYS
     Route: 048
  3. LENALIDOMIDE [Suspect]
     Active Substance: LENALIDOMIDE
     Dosage: 1 CAPSULE BY MOUTH EVERY DAY ON DAYS 1-28 EVERY 28 DAYS
     Route: 048

REACTIONS (4)
  - Arthralgia [Recovered/Resolved]
  - Urinary tract infection [Recovering/Resolving]
  - Joint injury [Recovering/Resolving]
  - Clostridium difficile infection [Recovered/Resolved]
